FAERS Safety Report 17697264 (Version 2)
Quarter: 2020Q2

REPORT INFORMATION
  Report Type: Report from Study
  Country: IT (occurrence: IT)
  Receive Date: 20200423
  Receipt Date: 20200429
  Transmission Date: 20200714
  Serious: Yes (Other)
  Sender: FDA-Public Use
  Company Number: IT-SUN PHARMACEUTICAL INDUSTRIES LTD-2020RR-244844

PATIENT
  Age: 45 Year
  Sex: Male

DRUGS (1)
  1. GABAPENTIN. [Suspect]
     Active Substance: GABAPENTIN
     Indication: PRODUCT USED FOR UNKNOWN INDICATION
     Dosage: UNK
     Route: 065

REACTIONS (7)
  - Memory impairment [Unknown]
  - Tachycardia [Unknown]
  - Drug interaction [Unknown]
  - Urinary retention [Unknown]
  - Confusional state [Unknown]
  - Dizziness [Unknown]
  - Tremor [Unknown]
